FAERS Safety Report 6970015-8 (Version None)
Quarter: 2010Q3

REPORT INFORMATION
  Report Type: 
  Country: None (occurrence: None)
  Receive Date: 20100902
  Receipt Date: 20100824
  Transmission Date: 20110219
  Serious: Yes (Hospitalization)
  Sender: FDA-Public Use
  Company Number: 2010US003439

PATIENT
  Age: 10 Year
  Sex: Male

DRUGS (1)
  1. TACROLIMUS [Suspect]
     Indication: DERMATITIS ATOPIC
     Dosage: 0.1%, UNKNOWN/D, TOPICAL
     Route: 061
     Dates: start: 20080603

REACTIONS (2)
  - ASTHMA [None]
  - CONDITION AGGRAVATED [None]
